FAERS Safety Report 7852653-3 (Version None)
Quarter: 2011Q4

REPORT INFORMATION
  Report Type: 
  Country: None (occurrence: None)
  Receive Date: 20111026
  Receipt Date: 20111019
  Transmission Date: 20120403
  Serious: Yes (Hospitalization)
  Sender: FDA-Public Use
  Company Number: IT-GLAXOSMITHKLINE-B0756771A

PATIENT
  Sex: Female

DRUGS (3)
  1. HYCAMTIN [Suspect]
     Indication: LUNG NEOPLASM MALIGNANT
     Dosage: 5.38MG PER DAY
     Route: 042
     Dates: start: 20110404, end: 20110411
  2. GRANULOKINE [Concomitant]
     Indication: PROPHYLAXIS
     Dosage: .5ML PER DAY
     Dates: start: 20110405, end: 20110411
  3. LAMIVUDINE [Concomitant]
     Indication: HEPATITIS B
     Dosage: 100MG PER DAY
     Route: 048
     Dates: start: 20100223, end: 20110601

REACTIONS (1)
  - TUBERCULOSIS [None]
